FAERS Safety Report 6803641 (Version 2)
Quarter: 2013Q2

REPORT INFORMATION
  Report Type: Spontaneous
  Country: US (occurrence: None)
  Receive Date: 20080922
  Receipt Date: 20120502
  Transmission Date: 20140414
  Serious: Yes (Other)
  Sender: FDA-Public Use
  Company Number: PHEH2008US05303

PATIENT
  Age: 63 Year
  Sex: Female

DRUGS (3)
  1. MIACALCIN [Suspect]
     Indication: OSTEOPOROSIS
     Dosage: INTRANASAL
  2. VITAMIN D [Suspect]
     Indication: OSTEOPOROSIS
     Dosage: 1000 IU, ORAL
     Route: 048
     Dates: end: 20080601
  3. AZMACORT (TRIAMCINOLONE ACETONIDE) [Concomitant]

REACTIONS (1)
  - BLOOD PRESSURE INCREASED [None]
